FAERS Safety Report 9958663 (Version 1)
Quarter: 2014Q1

REPORT INFORMATION
  Report Type: Spontaneous
  Country: US (occurrence: None)
  Receive Date: 20140228
  Receipt Date: 20140228
  Transmission Date: 20141002
  Serious: Yes (Other)
  Sender: FDA-Public Use
  Company Number: None

PATIENT
  Age: 26 Year
  Sex: Female
  Weight: 83.46 kg

DRUGS (6)
  1. LITHIUM CARBONATE [Suspect]
     Indication: BIPOLAR DISORDER
     Route: 048
     Dates: start: 20131115, end: 20131126
  2. LITHIUM CARBONATE [Suspect]
     Indication: POST-TRAUMATIC STRESS DISORDER
     Route: 048
     Dates: start: 20131115, end: 20131126
  3. LITHIUM CARBONATE [Suspect]
     Indication: AFFECTIVE DISORDER
     Route: 048
     Dates: start: 20131115, end: 20131126
  4. HAIR + SKIN + NAILS VITAMINS [Concomitant]
  5. BENZOTROPINE [Concomitant]
  6. THIOTHIXENE [Concomitant]

REACTIONS (5)
  - Candida infection [None]
  - Mydriasis [None]
  - Aggression [None]
  - Personality change [None]
  - Drug abuse [None]
